FAERS Safety Report 7488793-0 (Version None)
Quarter: 2011Q2

REPORT INFORMATION
  Report Type: 
  Country: None (occurrence: None)
  Receive Date: 20110518
  Receipt Date: 20110509
  Transmission Date: 20111010
  Serious: Yes (Life-Threatening, Hospitalization)
  Sender: FDA-Public Use
  Company Number: DE-BRACCO-000791

PATIENT
  Age: 69 Year
  Sex: Male

DRUGS (2)
  1. MULTIHANCE [Suspect]
     Indication: NUCLEAR MAGNETIC RESONANCE IMAGING
     Dates: start: 20110202, end: 20110202
  2. MULTIHANCE [Suspect]
     Indication: CAROTID ARTERY STENOSIS
     Dates: start: 20110202, end: 20110202

REACTIONS (4)
  - DEPRESSED LEVEL OF CONSCIOUSNESS [None]
  - ERYTHEMA [None]
  - BLOOD PRESSURE IMMEASURABLE [None]
  - DYSPNOEA [None]
